FAERS Safety Report 9401094 (Version 2)
Quarter: 2013Q3

REPORT INFORMATION
  Report Type: Spontaneous
  Country: JP (occurrence: JP)
  Receive Date: 20130715
  Receipt Date: 20130722
  Transmission Date: 20140515
  Serious: Yes (Other)
  Sender: FDA-Public Use
  Company Number: JP-009507513-1307JPN004978

PATIENT
  Age: 84 Year
  Sex: Female

DRUGS (2)
  1. GASTER D [Suspect]
     Dosage: 20 MG, BID
     Route: 048
     Dates: start: 201306, end: 2013
  2. GASTER D [Suspect]
     Dosage: 20 MG UID/QD
     Route: 048
     Dates: start: 2013

REACTIONS (1)
  - Renal impairment [Unknown]
